FAERS Safety Report 9908584 (Version 1)
Quarter: 2014Q1

REPORT INFORMATION
  Report Type: Spontaneous
  Country: IL (occurrence: IL)
  Receive Date: 20140219
  Receipt Date: 20140219
  Transmission Date: 20141002
  Serious: Yes (Life-Threatening)
  Sender: FDA-Public Use
  Company Number: IL-ASTRAZENECA-2014SE10153

PATIENT
  Age: 52 Year
  Sex: Male

DRUGS (1)
  1. BRILINTA [Suspect]
     Indication: ACUTE MYOCARDIAL INFARCTION
     Route: 048
     Dates: start: 20140205

REACTIONS (1)
  - Thrombosis in device [Unknown]
